FAERS Safety Report 25441822 (Version 1)
Quarter: 2025Q2

REPORT INFORMATION
  Report Type: Spontaneous
  Country: FR (occurrence: FR)
  Receive Date: 20250616
  Receipt Date: 20250616
  Transmission Date: 20250717
  Serious: Yes (Disabling, Other)
  Sender: ELI LILLY AND COMPANY
  Company Number: None

PATIENT
  Age: 51 Year
  Sex: Female
  Weight: 70 kg

DRUGS (6)
  1. DULOXETINE HYDROCHLORIDE [Suspect]
     Active Substance: DULOXETINE HYDROCHLORIDE
     Indication: Neuralgia
     Dosage: 60 MG, DAILY
     Route: 048
     Dates: start: 202407
  2. TECFIDERA [Suspect]
     Active Substance: DIMETHYL FUMARATE
     Indication: Multiple sclerosis
     Dosage: 2 DOSAGE FORM, DAILY
     Route: 048
     Dates: start: 20160101
  3. DIHYDROCODEINE BITARTRATE [Suspect]
     Active Substance: DIHYDROCODEINE BITARTRATE
     Indication: Pain
     Dosage: 2 DOSAGE FORM, DAILY
     Route: 048
     Dates: start: 20150101
  4. BACLOFEN [Suspect]
     Active Substance: BACLOFEN
     Indication: Muscle spasticity
     Route: 048
     Dates: start: 202405
  5. ZOPICLONE [Concomitant]
     Active Substance: ZOPICLONE
     Indication: Product used for unknown indication
     Route: 065
  6. ESOMEPRAZOLE [Concomitant]
     Active Substance: ESOMEPRAZOLE
     Indication: Product used for unknown indication
     Route: 065

REACTIONS (4)
  - Erythromelalgia [Not Recovered/Not Resolved]
  - Abdominal pain upper [Not Recovered/Not Resolved]
  - Insomnia [Not Recovered/Not Resolved]
  - Off label use [Unknown]

NARRATIVE: CASE EVENT DATE: 20250201
